FAERS Safety Report 20641251 (Version 2)
Quarter: 2025Q2

REPORT INFORMATION
  Report Type: Spontaneous
  Country: IT (occurrence: IT)
  Receive Date: 20220328
  Receipt Date: 20250619
  Transmission Date: 20250717
  Serious: Yes (Other)
  Sender: AUROBINDO
  Company Number: IT-RALPHARMA SRL-202200003

PATIENT
  Age: 43 Year
  Sex: Male

DRUGS (11)
  1. RASAGILINE [Suspect]
     Active Substance: RASAGILINE
     Indication: Product used for unknown indication
     Route: 065
  2. CLONAZEPAM [Concomitant]
     Active Substance: CLONAZEPAM
     Indication: Parkinson^s disease
     Route: 065
  3. CLONAZEPAM [Concomitant]
     Active Substance: CLONAZEPAM
     Indication: Sleep disorder
  4. CARBIDOPA [Concomitant]
     Active Substance: CARBIDOPA
     Indication: Product used for unknown indication
     Dosage: 225 MILLIGRAM, ONCE A DAY (9 DOSAGES 25 MG DAILY)
     Route: 065
  5. CARBIDOPA [Concomitant]
     Active Substance: CARBIDOPA
     Dosage: 50 MILLIGRAM, ONCE A DAY (2 DOSAGES 25 MG DAILY )
     Route: 065
  6. TRAZODONE [Concomitant]
     Active Substance: TRAZODONE HYDROCHLORIDE
     Indication: Parkinson^s disease
     Route: 065
  7. TRAZODONE [Concomitant]
     Active Substance: TRAZODONE HYDROCHLORIDE
     Indication: Sleep disorder
  8. PRAMIPEXOLE [Concomitant]
     Active Substance: PRAMIPEXOLE
     Indication: Parkinson^s disease
     Dosage: 1.05 MILLIGRAM, ONCE A DAY
     Route: 065
  9. MELEVODOPA [Concomitant]
     Active Substance: MELEVODOPA
     Indication: Product used for unknown indication
     Dosage: 200 MILLIGRAM, ONCE A DAY
     Route: 065
  10. MELEVODOPA [Concomitant]
     Active Substance: MELEVODOPA
     Route: 065
  11. LEVODOPA [Concomitant]
     Active Substance: LEVODOPA
     Indication: Parkinson^s disease
     Dosage: 900 MILLIGRAM, ONCE A DAY
     Route: 065

REACTIONS (2)
  - Sleep disorder [Unknown]
  - Withdrawal syndrome [Recovering/Resolving]
